FAERS Safety Report 8618112-5 (Version None)
Quarter: 2012Q3

REPORT INFORMATION
  Report Type: 
  Country: None (occurrence: None)
  Receive Date: 20120824
  Receipt Date: 20120501
  Transmission Date: 20120928
  Serious: No
  Sender: FDA-Public Use
  Company Number: US-ASTRAZENECA-2012SE28428

PATIENT
  Age: 71 Year
  Sex: Female
  Weight: 52.2 kg

DRUGS (3)
  1. FLONASE [Concomitant]
     Indication: HYPERSENSITIVITY
  2. FLONASE [Concomitant]
     Indication: SINUS DISORDER
  3. SYMBICORT [Suspect]
     Indication: BRONCHITIS
     Dosage: TWO INHALATION TWICE DAILY
     Route: 055
     Dates: start: 20120427

REACTIONS (3)
  - DYSURIA [None]
  - BLADDER IRRITATION [None]
  - BLADDER DISORDER [None]
